FAERS Safety Report 9167644 (Version 1)
Quarter: 2013Q1

REPORT INFORMATION
  Report Type: Spontaneous
  Country: US (occurrence: None)
  Receive Date: 20130304
  Receipt Date: 20130304
  Transmission Date: 20140127
  Serious: Yes (Other)
  Sender: FDA-Public Use
  Company Number: 20130067

PATIENT
  Age: 57 Year
  Sex: Male

DRUGS (4)
  1. CLONIDINE HYDROCHLORIDE [Suspect]
  2. BACLOFEN [Suspect]
  3. BUPIVACAINE [Suspect]
     Route: 037
  4. FENTANYL [Suspect]
     Dosage: 275 - 450 MCG /DAY

REACTIONS (3)
  - Drug withdrawal syndrome [None]
  - Device malfunction [None]
  - Ejaculation disorder [None]
